FAERS Safety Report 17185424 (Version 3)
Quarter: 2020Q1

REPORT INFORMATION
  Report Type: Spontaneous
  Country: PL (occurrence: PL)
  Receive Date: 20191220
  Receipt Date: 20200108
  Transmission Date: 20200409
  Serious: Yes (Other)
  Sender: FDA-Public Use
  Company Number: PL-PFIZER INC-2019545715

PATIENT
  Age: 52 Year
  Sex: Female

DRUGS (2)
  1. DTIC [DACARBAZINE] [Suspect]
     Active Substance: DACARBAZINE
     Indication: PALLIATIVE CARE
     Dosage: UNK UNK, CYCLIC
  2. DOXORUBICIN HCL [Suspect]
     Active Substance: DOXORUBICIN HYDROCHLORIDE
     Indication: PALLIATIVE CARE
     Dosage: UNK, CYCLIC
     Route: 065
     Dates: start: 201808

REACTIONS (2)
  - Neutropenia [Unknown]
  - Anaemia [Unknown]
